FAERS Safety Report 11077542 (Version 2)
Quarter: 2015Q2

REPORT INFORMATION
  Report Type: Spontaneous
  Country: US (occurrence: US)
  Receive Date: 20150430
  Receipt Date: 20150526
  Transmission Date: 20150821
  Serious: No
  Sender: FDA-Public Use
  Company Number: US-JNJFOC-20150206075

PATIENT
  Sex: Female
  Weight: 77.11 kg

DRUGS (3)
  1. VITAMIN D [Concomitant]
     Active Substance: CHOLECALCIFEROL
     Indication: ROUTINE HEALTH MAINTENANCE
     Route: 065
  2. VITAMIN B12 [Concomitant]
     Active Substance: CYANOCOBALAMIN
     Indication: ROUTINE HEALTH MAINTENANCE
     Route: 065
  3. PANCREASE MT [Suspect]
     Active Substance: PANCRELIPASE
     Indication: PANCREATITIS
     Dosage: 10500 UNITS
     Route: 048
     Dates: start: 2014

REACTIONS (2)
  - Wrong technique in drug usage process [Not Recovered/Not Resolved]
  - Fear [Not Recovered/Not Resolved]
